FAERS Safety Report 5654092-2 (Version None)
Quarter: 2008Q1

REPORT INFORMATION
  Report Type: 
  Country: None (occurrence: None)
  Receive Date: 20080306
  Receipt Date: 20080223
  Transmission Date: 20080703
  Serious: Yes (Other)
  Sender: FDA-Public Use
  Company Number: US-PFIZER INC-2008017541

PATIENT
  Sex: Female
  Weight: 67.272 kg

DRUGS (3)
  1. DILANTIN [Suspect]
     Indication: CONVULSION
  2. PHENOBARBITAL TAB [Suspect]
     Indication: CONVULSION
  3. ADVAIR DISKUS 100/50 [Concomitant]

REACTIONS (5)
  - ANTICONVULSANT DRUG LEVEL DECREASED [None]
  - CONVULSION [None]
  - DRUG DOSE OMISSION [None]
  - LOSS OF CONSCIOUSNESS [None]
  - OSTEOPENIA [None]
